FAERS Safety Report 19099588 (Version 2)
Quarter: 2021Q2

REPORT INFORMATION
  Report Type: Spontaneous
  Country: FR (occurrence: FR)
  Receive Date: 20210407
  Receipt Date: 20210421
  Transmission Date: 20210717
  Serious: Yes (Death, Other)
  Sender: FDA-Public Use
  Company Number: FR-AUROBINDO-AUR-APL-2021-013803

PATIENT
  Age: 89 Year
  Sex: Female

DRUGS (3)
  1. HYDROCHLOROTHIAZIDE. [Suspect]
     Active Substance: HYDROCHLOROTHIAZIDE
     Indication: PRODUCT USED FOR UNKNOWN INDICATION
     Dosage: INC
     Route: 048
     Dates: end: 20210319
  2. PREVISCAN [PENTOXIFYLLINE] [Suspect]
     Active Substance: PENTOXIFYLLINE
     Indication: ATRIAL FIBRILLATION
     Dosage: INC
     Route: 048
     Dates: end: 20210319
  3. CANDESARTAN. [Suspect]
     Active Substance: CANDESARTAN
     Indication: PRODUCT USED FOR UNKNOWN INDICATION
     Dosage: UNK, INC
     Route: 048
     Dates: end: 20210319

REACTIONS (3)
  - Haemorrhagic stroke [Fatal]
  - International normalised ratio increased [Fatal]
  - Hypertension [Fatal]

NARRATIVE: CASE EVENT DATE: 20210319
